FAERS Safety Report 8469255-0 (Version None)
Quarter: 2012Q2

REPORT INFORMATION
  Report Type: 
  Country: None (occurrence: None)
  Receive Date: 20120626
  Receipt Date: 20120613
  Transmission Date: 20120825
  Serious: Yes (Other)
  Sender: FDA-Public Use
  Company Number: ES-CELGENEUS-144-21880-12061909

PATIENT
  Age: 70 Year
  Sex: Male

DRUGS (4)
  1. REVLIMID [Suspect]
     Indication: MULTIPLE MYELOMA
     Route: 048
     Dates: start: 20110614
  2. DEXAMETHASONE [Concomitant]
     Indication: MULTIPLE MYELOMA
     Route: 065
  3. DEXAMETHASONE [Concomitant]
     Route: 065
  4. REVLIMID [Suspect]
     Route: 048
     Dates: end: 20120327

REACTIONS (2)
  - TOXICITY TO VARIOUS AGENTS [None]
  - NEUROPATHY PERIPHERAL [None]
